FAERS Safety Report 18316482 (Version 4)
Quarter: 2020Q4

REPORT INFORMATION
  Report Type: Report from Study
  Country: US (occurrence: US)
  Receive Date: 20200927
  Receipt Date: 20201224
  Transmission Date: 20210113
  Serious: Yes (Life-Threatening, Hospitalization)
  Sender: FDA-Public Use
  Company Number: US-ROCHE-2680545

PATIENT
  Age: 50 Year
  Sex: Female
  Weight: 65.7 kg

DRUGS (9)
  1. XL184 [Suspect]
     Active Substance: CABOZANTINIB
     Route: 048
     Dates: start: 20200919
  2. BLISOVI 24 FE [Concomitant]
     Active Substance: ETHINYL ESTRADIOL\NORETHINDRONE ACETATE
  3. ATEZOLIZUMAB. [Suspect]
     Active Substance: ATEZOLIZUMAB
     Indication: METASTATIC NEOPLASM
     Route: 042
     Dates: start: 20200709
  4. GABAPENTIN. [Concomitant]
     Active Substance: GABAPENTIN
  5. XL184 [Suspect]
     Active Substance: CABOZANTINIB
     Indication: METASTATIC NEOPLASM
     Dosage: ON 09 SEP 2020, THE PATIENT RECEIVED THE MOST RECENT DOSE OF CABOZANTINIB PRIOR TO THE EVENTS.
     Route: 048
     Dates: start: 20200709
  6. LEVOTHYROXINE. [Concomitant]
     Active Substance: LEVOTHYROXINE
  7. ZYRTEC (UNITED STATES) [Concomitant]
  8. ZOFRAN [Concomitant]
     Active Substance: ONDANSETRON HYDROCHLORIDE
  9. ATEZOLIZUMAB. [Suspect]
     Active Substance: ATEZOLIZUMAB
     Route: 042
     Dates: start: 20200919

REACTIONS (2)
  - Sepsis [Recovered/Resolved]
  - Hypotension [Recovered/Resolved]

NARRATIVE: CASE EVENT DATE: 20200909
